FAERS Safety Report 19458048 (Version 2)
Quarter: 2021Q3

REPORT INFORMATION
  Report Type: Spontaneous
  Country: FR (occurrence: FR)
  Receive Date: 20210624
  Receipt Date: 20210803
  Transmission Date: 20211014
  Serious: Yes (Hospitalization)
  Sender: FDA-Public Use
  Company Number: FR-IPSEN BIOPHARMACEUTICALS, INC.-2021-14768

PATIENT
  Age: 50 Year
  Sex: Female

DRUGS (9)
  1. BOTULINIC TOXIN [BOTULINUM TOXIN TYPE A] [Suspect]
     Active Substance: BOTULINUM TOXIN TYPE A
     Indication: SKIN WRINKLING
     Dosage: 2 CLICKS IN THE LEFT GLABELLA AND 1 CLICK IN EACH SIDE OF EXTERNAL CANTHUS.\
     Route: 065
     Dates: start: 20210504, end: 20210504
  2. BOTULINIC TOXIN [BOTULINUM TOXIN TYPE A] [Suspect]
     Active Substance: BOTULINUM TOXIN TYPE A
     Indication: SKIN WRINKLING
  3. BELOTERO INTENS E [Suspect]
     Active Substance: HYALURONIC ACID
     Indication: SKIN WRINKLING
  4. AZZALURE [Suspect]
     Active Substance: BOTULINUM TOXIN TYPE A
     Indication: SKIN WRINKLING
     Dosage: DOSE? 44 IU
     Route: 065
     Dates: start: 20210406, end: 20210406
  5. BELOTERO INTENSE [Suspect]
     Active Substance: HYALURONIC ACID
     Indication: SKIN WRINKLING
  6. AZZALURE [Suspect]
     Active Substance: BOTULINUM TOXIN TYPE A
     Indication: SKIN WRINKLING
  7. BELOTERO INTENSE [Suspect]
     Active Substance: HYALURONIC ACID
     Indication: SKIN WRINKLING
     Route: 065
     Dates: start: 20210504, end: 20210504
  8. KARDEGIC [Concomitant]
     Active Substance: ASPIRIN DL-LYSINE
  9. BELOTERO INTENSE [Suspect]
     Active Substance: HYALURONIC ACID
     Indication: SKIN WRINKLING

REACTIONS (13)
  - Ill-defined disorder [Unknown]
  - General physical health deterioration [Unknown]
  - Paraesthesia [Unknown]
  - Discomfort [Unknown]
  - Headache [Unknown]
  - Asthenia [Unknown]
  - Orthostatic hypotension [Unknown]
  - Formication [Unknown]
  - Off label use [Unknown]
  - Burning sensation [Unknown]
  - Vertigo [Unknown]
  - Feeling hot [Unknown]
  - Autonomic nervous system imbalance [Unknown]

NARRATIVE: CASE EVENT DATE: 20210504
